FAERS Safety Report 6992531-5 (Version None)
Quarter: 2010Q3

REPORT INFORMATION
  Report Type: 
  Country: None (occurrence: None)
  Receive Date: 20100916
  Receipt Date: 20100916
  Transmission Date: 20110219
  Serious: No
  Sender: FDA-Public Use
  Company Number: None

PATIENT
  Sex: Female
  Weight: 58.0604 kg

DRUGS (1)
  1. NEURONTIN [Suspect]
     Dosage: 2 TIMES A DAY

REACTIONS (9)
  - ACTIVITIES OF DAILY LIVING IMPAIRED [None]
  - DYSGEUSIA [None]
  - HYPOPHAGIA [None]
  - NAUSEA [None]
  - PAIN [None]
  - PAROSMIA [None]
  - PYREXIA [None]
  - SWELLING [None]
  - VOMITING [None]
